FAERS Safety Report 8489715-6 (Version None)
Quarter: 2012Q3

REPORT INFORMATION
  Report Type: 
  Country: None (occurrence: None)
  Receive Date: 20120705
  Receipt Date: 20120702
  Transmission Date: 20120928
  Serious: Yes (Death)
  Sender: FDA-Public Use
  Company Number: IE-GLAXOSMITHKLINE-B0801540A

PATIENT
  Sex: Male

DRUGS (3)
  1. PHENYTOIN [Concomitant]
     Dosage: 300MG AT NIGHT
  2. POTIGA [Suspect]
     Indication: EPILEPSY
     Dosage: 1000MG THREE TIMES PER DAY
     Route: 065
     Dates: start: 20111028
  3. TEGRETOL [Concomitant]
     Dosage: 400MG TWICE PER DAY

REACTIONS (1)
  - SUDDEN UNEXPLAINED DEATH IN EPILEPSY [None]
